FAERS Safety Report 5715798-X (Version None)
Quarter: 2008Q2

REPORT INFORMATION
  Report Type: 
  Country: None (occurrence: None)
  Receive Date: 20080424
  Receipt Date: 20080417
  Transmission Date: 20081010
  Serious: Yes (Other)
  Sender: FDA-Public Use
  Company Number: IT-BRISTOL-MYERS SQUIBB COMPANY-14161830

PATIENT
  Age: 62 Year
  Sex: Female

DRUGS (1)
  1. CEFPROZIL [Suspect]
     Indication: BRONCHITIS
     Route: 048
     Dates: start: 20080408, end: 20080408

REACTIONS (2)
  - DYSPNOEA [None]
  - ERYTHEMA [None]
